FAERS Safety Report 14848143 (Version 4)
Quarter: 2022Q1

REPORT INFORMATION
  Report Type: Spontaneous
  Country: US (occurrence: US)
  Receive Date: 20180504
  Receipt Date: 20220324
  Transmission Date: 20220423
  Serious: No
  Sender: FDA-Public Use
  Company Number: US-PFIZER INC-2017528000

PATIENT
  Age: 61 Year
  Sex: Female
  Weight: 85.714 kg

DRUGS (23)
  1. DOCETAXEL [Suspect]
     Active Substance: DOCETAXEL
     Indication: Invasive ductal breast carcinoma
     Dosage: 158 MG, SINGLE
     Dates: start: 20120403, end: 20120403
  2. DOCETAXEL [Suspect]
     Active Substance: DOCETAXEL
     Dosage: 156 MG, SINGLE
     Dates: start: 20120424, end: 20120424
  3. DOCETAXEL [Suspect]
     Active Substance: DOCETAXEL
     Dosage: 154 MG, SINGLE
     Dates: start: 20120515, end: 20120515
  4. DOCETAXEL [Suspect]
     Active Substance: DOCETAXEL
     Dosage: 152 MG, CYCLIC
     Dates: start: 20120612, end: 20120724
  5. DOCETAXEL [Suspect]
     Active Substance: DOCETAXEL
     Dosage: UNK, CYCLIC
     Dates: end: 20120824
  6. TAXOTERE [Suspect]
     Active Substance: DOCETAXEL
     Indication: Invasive ductal breast carcinoma
     Dosage: 158 MG, SINGLE
     Dates: start: 20120403, end: 20120403
  7. TAXOTERE [Suspect]
     Active Substance: DOCETAXEL
     Dosage: 156 MG, SINGLE
     Dates: start: 20120424, end: 20120424
  8. TAXOTERE [Suspect]
     Active Substance: DOCETAXEL
     Dosage: 154 MG, SINGLE
     Dates: start: 20120515, end: 20120515
  9. TAXOTERE [Suspect]
     Active Substance: DOCETAXEL
     Dosage: 152 MG, CYCLIC
     Dates: start: 20120612, end: 20120724
  10. TAXOTERE [Suspect]
     Active Substance: DOCETAXEL
     Dosage: UNK, CYCLIC
     Dates: end: 20120824
  11. PARAPLATIN [Concomitant]
     Active Substance: CARBOPLATIN
     Indication: Invasive ductal breast carcinoma
     Dosage: 670 MG, UNK
     Dates: start: 20120403
  12. PARAPLATIN [Concomitant]
     Active Substance: CARBOPLATIN
     Dosage: 610 MG, SINGLE
     Dates: start: 20120424, end: 20120424
  13. PARAPLATIN [Concomitant]
     Active Substance: CARBOPLATIN
     Dosage: 600 MG, SINGLE
     Dates: start: 20120515, end: 20120515
  14. PARAPLATIN [Concomitant]
     Active Substance: CARBOPLATIN
     Dosage: 660 MG, SINGLE
     Dates: start: 20120612, end: 20120612
  15. PARAPLATIN [Concomitant]
     Active Substance: CARBOPLATIN
     Dosage: 660 MG, SINGLE
     Dates: start: 20120703, end: 20120703
  16. PARAPLATIN [Concomitant]
     Active Substance: CARBOPLATIN
     Dosage: 630 MG, SINGLE
     Dates: start: 20120724, end: 20120724
  17. VERAPAMIL [Concomitant]
     Active Substance: VERAPAMIL HYDROCHLORIDE
     Dosage: 240 MG, UNK
     Dates: start: 1998
  18. CLONIDINE [Concomitant]
     Active Substance: CLONIDINE
     Dosage: 0.1 MG, UNK
     Dates: start: 1998
  19. LETROZOLE [Concomitant]
     Active Substance: LETROZOLE
     Indication: Hormone therapy
     Dosage: 215 MG, UNK
     Dates: start: 201208
  20. GABAPENTIN [Concomitant]
     Active Substance: GABAPENTIN
     Dosage: UNK
     Dates: start: 1998
  21. PERCOCET [Concomitant]
     Active Substance: ACETAMINOPHEN\OXYCODONE HYDROCHLORIDE
     Dosage: UNK
     Dates: start: 1998
  22. OXYCODONE [Concomitant]
     Active Substance: OXYCODONE
     Dosage: UNK
     Dates: start: 1998
  23. DULOXETINE [Concomitant]
     Active Substance: DULOXETINE
     Dosage: UNK
     Dates: start: 1998

REACTIONS (7)
  - Alopecia [Not Recovered/Not Resolved]
  - Hair texture abnormal [Not Recovered/Not Resolved]
  - Hair disorder [Not Recovered/Not Resolved]
  - Hair colour changes [Not Recovered/Not Resolved]
  - Madarosis [Not Recovered/Not Resolved]
  - Depression [Unknown]
  - Depressed mood [Unknown]

NARRATIVE: CASE EVENT DATE: 20130124
